FAERS Safety Report 6763773-9 (Version None)
Quarter: 2010Q2

REPORT INFORMATION
  Report Type: 
  Country: None (occurrence: None)
  Receive Date: 20100610
  Receipt Date: 20100604
  Transmission Date: 20101027
  Serious: Yes (Death, Other)
  Sender: FDA-Public Use
  Company Number: GB-ROCHE-706792

PATIENT
  Age: 52 Year
  Sex: Male

DRUGS (4)
  1. RIBAVIRIN [Suspect]
     Route: 048
     Dates: start: 20010501
  2. RIBAVIRIN [Suspect]
     Route: 048
     Dates: start: 20030301
  3. INTERFERON ALFA-2B [Suspect]
     Dosage: DOSE: 3 MU THRICE WEEKLY
     Route: 058
     Dates: start: 20010501
  4. INTERFERON ALFA-2B [Suspect]
     Dosage: ROUTE: SUBCUTANEOUS
     Route: 058
     Dates: start: 20030301

REACTIONS (4)
  - HEPATIC FAILURE [None]
  - HEPATIC NEOPLASM MALIGNANT [None]
  - INFLUENZA LIKE ILLNESS [None]
  - PARKINSONISM [None]
